FAERS Safety Report 9440447 (Version 1)
Quarter: 2013Q3

REPORT INFORMATION
  Report Type: Spontaneous
  Country: US (occurrence: US)
  Receive Date: 20130805
  Receipt Date: 20130805
  Transmission Date: 20140515
  Serious: Yes (Other)
  Sender: FDA-Public Use
  Company Number: PHHY2013US081062

PATIENT
  Age: 20 Year
  Sex: Male

DRUGS (2)
  1. VALPROIC ACID [Suspect]
     Indication: GRAND MAL CONVULSION
     Dosage: UNK UKN, UNK
  2. VALPROIC ACID [Suspect]
     Dosage: UNK UKN, UNK

REACTIONS (3)
  - Hepatic steatosis [Unknown]
  - Transaminases increased [Unknown]
  - Vomiting [Unknown]
